FAERS Safety Report 18333297 (Version 1)
Quarter: 2020Q4

REPORT INFORMATION
  Report Type: Other
  Country: US (occurrence: US)
  Receive Date: 20201001
  Receipt Date: 20201001
  Transmission Date: 20210113
  Serious: Yes (Other)
  Sender: FDA-Public Use
  Company Number: US-ROCHE-2684338

PATIENT
  Sex: Female

DRUGS (2)
  1. ACTEMRA [Suspect]
     Active Substance: TOCILIZUMAB
     Indication: RHEUMATOID ARTHRITIS
     Dosage: INJECT IN 0.9 ML
     Route: 058
  2. ACTEMRA [Suspect]
     Active Substance: TOCILIZUMAB

REACTIONS (11)
  - Ankle fracture [Unknown]
  - Alopecia [Unknown]
  - Fall [Unknown]
  - Lower limb fracture [Unknown]
  - Peroneal nerve palsy [Unknown]
  - Skin discolouration [Unknown]
  - Ill-defined disorder [Unknown]
  - Colour blindness [Unknown]
  - Hip fracture [Unknown]
  - Hypoacusis [Unknown]
  - Rib fracture [Unknown]
